FAERS Safety Report 6760289-0 (Version None)
Quarter: 2010Q2

REPORT INFORMATION
  Report Type: 
  Country: None (occurrence: None)
  Receive Date: 20100604
  Receipt Date: 20100525
  Transmission Date: 20101027
  Serious: No
  Sender: FDA-Public Use
  Company Number: 009886

PATIENT
  Age: 64 Year
  Sex: Male

DRUGS (9)
  1. PLETAL [Suspect]
     Dosage: 100 MG, ORAL
     Route: 048
  2. LORZAAR (LOSARTAN POTASSIUM) [Concomitant]
  3. HYZAAR [Concomitant]
  4. AMLODIPINE [Concomitant]
  5. CARVEDILOL [Concomitant]
  6. ATORVASTATIN CALCIUM [Concomitant]
  7. EZETROL GFR (EZETIMIBE) [Concomitant]
  8. AMARYL SWE (GLIMEPIRIDE) [Concomitant]
  9. ASPIRIN [Concomitant]

REACTIONS (3)
  - AKINESIA [None]
  - CARDIAC FAILURE [None]
  - CARDIOGENIC SHOCK [None]
